FAERS Safety Report 15760784 (Version 1)
Quarter: 2018Q4

REPORT INFORMATION
  Report Type: Report from Study
  Country: US (occurrence: BR)
  Receive Date: 20181226
  Receipt Date: 20181226
  Transmission Date: 20190205
  Serious: Yes (Hospitalization, Other)
  Sender: FDA-Public Use
  Company Number: US-SUNOVION-2018SUN004946

PATIENT
  Age: 82 Year
  Sex: Female
  Weight: 57 kg

DRUGS (3)
  1. INDACATEROL [Suspect]
     Active Substance: INDACATEROL
     Indication: CHRONIC OBSTRUCTIVE PULMONARY DISEASE
     Dosage: 300 UG, OT (USED FROM 3 YEARS AND USED DAILY IN THE MORNING)
     Route: 055
  2. ATROVENT [Suspect]
     Active Substance: IPRATROPIUM BROMIDE
     Indication: PRODUCT USED FOR UNKNOWN INDICATION
     Dosage: 19 DF, UNK (USING FROM 10 DAYS)
     Route: 055
  3. BEROTEC [Suspect]
     Active Substance: FENOTEROL HYDROBROMIDE
     Indication: DYSPNOEA
     Dosage: 4 DF, BID (STARTED ABOUT 10 YEARS)
     Route: 055

REACTIONS (9)
  - Dyspnoea [Unknown]
  - Retinal detachment [Unknown]
  - Dyspnoea exertional [Unknown]
  - Retinal aneurysm [Unknown]
  - Malaise [Unknown]
  - Cataract [Unknown]
  - Feeling abnormal [Unknown]
  - Visual impairment [Unknown]
  - Ocular hypertension [Unknown]

NARRATIVE: CASE EVENT DATE: 20180323
